FAERS Safety Report 10406969 (Version 1)
Quarter: 2014Q3

REPORT INFORMATION
  Report Type: Spontaneous
  Country: US (occurrence: None)
  Receive Date: 20140822
  Receipt Date: 20140822
  Transmission Date: 20150326
  Serious: No
  Sender: FDA-Public Use
  Company Number: None

PATIENT
  Age: 56 Year
  Sex: Male
  Weight: 91.17 kg

DRUGS (6)
  1. CITRUCIL [Concomitant]
  2. VITAMIN D [Concomitant]
     Active Substance: CHOLECALCIFEROL
  3. PHILLIPS CAP [Concomitant]
  4. NEXIUM [Concomitant]
     Active Substance: ESOMEPRAZOLE MAGNESIUM
  5. MOTRIN [Concomitant]
     Active Substance: IBUPROFEN
  6. CIPROFLOXACIN. [Suspect]
     Active Substance: CIPROFLOXACIN
     Indication: PROSTATE INFECTION
     Dosage: 1 PILL TWICE DAILY MOUTH
     Route: 048
     Dates: start: 20140808, end: 20140811

REACTIONS (4)
  - Pain in extremity [None]
  - Myalgia [None]
  - Musculoskeletal stiffness [None]
  - Arthralgia [None]

NARRATIVE: CASE EVENT DATE: 20140809
